FAERS Safety Report 4777888-8 (Version None)
Quarter: 2005Q3

REPORT INFORMATION
  Report Type: 
  Country: None (occurrence: None)
  Receive Date: 20050926
  Receipt Date: 20050915
  Transmission Date: 20060218
  Serious: Yes (Other)
  Sender: FDA-Public Use
  Company Number: JP-SOLVAY-00305002961

PATIENT
  Age: 9 Year

DRUGS (3)
  1. BANAN [Concomitant]
     Indication: ILL-DEFINED DISORDER
     Dosage: DAILY DOSE:  UNKNOWN
     Route: 048
  2. LUVOX [Suspect]
     Indication: AUTISM
     Dosage: DAILY DOSE:  UNKNOWN
     Route: 048
  3. ALESION [Concomitant]
     Indication: ILL-DEFINED DISORDER
     Dosage: DAILY DOSE:  UNKNOWN
     Route: 065

REACTIONS (1)
  - FACE OEDEMA [None]
